FAERS Safety Report 5083082-6 (Version None)
Quarter: 2006Q3

REPORT INFORMATION
  Report Type: 
  Country: None (occurrence: None)
  Receive Date: 20060814
  Receipt Date: 20060731
  Transmission Date: 20061208
  Serious: Yes (Other)
  Sender: FDA-Public Use
  Company Number: 2006096327

PATIENT
  Age: 71 Year
  Sex: Female

DRUGS (1)
  1. IRINOTECAN HCL [Suspect]
     Indication: OVARIAN CANCER
     Dosage: OTHER
     Route: 050

REACTIONS (1)
  - MYELODYSPLASTIC SYNDROME [None]
